FAERS Safety Report 8906570 (Version 1)
Quarter: 2012Q4

REPORT INFORMATION
  Report Type: 
  Country: US (occurrence: US)
  Receive Date: 20121113
  Receipt Date: 20121113
  Transmission Date: 20130627
  Serious: No
  Sender: FDA-Public Use
  Company Number: US-AMGEN-USASP2012011186

PATIENT
  Sex: Female

DRUGS (7)
  1. ENBREL [Suspect]
     Indication: RHEUMATOID ARTHRITIS
     Dosage: 50 mg, qwk
     Dates: start: 20120208
  2. COLCHICINE [Concomitant]
     Dosage: UNK
  3. COMPAZINE                          /00013302/ [Concomitant]
  4. METHOTREXATE [Concomitant]
     Dosage: UNK
  5. LEFLUNOMIDE [Concomitant]
     Dosage: UNK
  6. FLEXERIL                           /00428402/ [Concomitant]
  7. FOLIC ACID [Concomitant]
     Dosage: UNK

REACTIONS (3)
  - Myalgia [Unknown]
  - Muscle spasms [Unknown]
  - Injection site reaction [Unknown]
